FAERS Safety Report 16652303 (Version 1)
Quarter: 2019Q3

REPORT INFORMATION
  Report Type: Spontaneous
  Country: AT (occurrence: AT)
  Receive Date: 20190731
  Receipt Date: 20190731
  Transmission Date: 20191004
  Serious: Yes (Other)
  Sender: FDA-Public Use
  Company Number: AT-JNJFOC-20190736608

PATIENT
  Age: 77 Year
  Sex: Female
  Weight: 62 kg

DRUGS (12)
  1. THIAMAZOL [Suspect]
     Active Substance: METHIMAZOLE
     Indication: PRODUCT USED FOR UNKNOWN INDICATION
     Route: 048
  2. TEMESTA                            /00273201/ [Concomitant]
     Active Substance: LORAZEPAM
     Route: 042
  3. ADEMPAS [Concomitant]
     Active Substance: RIOCIGUAT
     Route: 048
  4. DOBUTAMIN [Concomitant]
     Active Substance: DOBUTAMINE HYDROCHLORIDE
     Route: 042
  5. AQUAPHORIL [Concomitant]
     Active Substance: XIPAMIDE
     Route: 048
  6. SEROQUEL [Suspect]
     Active Substance: QUETIAPINE FUMARATE
     Indication: PRODUCT USED FOR UNKNOWN INDICATION
     Route: 048
  7. INHIXA [Concomitant]
     Active Substance: ENOXAPARIN SODIUM
     Route: 065
  8. PASSEDAN-NERVENTROPFEN [Suspect]
     Active Substance: HERBALS
     Indication: PRODUCT USED FOR UNKNOWN INDICATION
     Route: 048
  9. LASIX [Concomitant]
     Active Substance: FUROSEMIDE
     Route: 042
  10. CONCOR [Concomitant]
     Active Substance: BISOPROLOL FUMARATE
     Route: 048
  11. RISPERDAL [Suspect]
     Active Substance: RISPERIDONE
     Indication: PRODUCT USED FOR UNKNOWN INDICATION
     Route: 065
  12. OPSUMIT [Suspect]
     Active Substance: MACITENTAN
     Indication: PULMONARY HYPERTENSION
     Route: 048

REACTIONS (1)
  - Pancytopenia [Unknown]

NARRATIVE: CASE EVENT DATE: 20190710
